FAERS Safety Report 18985418 (Version 1)
Quarter: 2021Q1

REPORT INFORMATION
  Report Type: Other
  Country: DE (occurrence: DE)
  Receive Date: 20210309
  Receipt Date: 20210309
  Transmission Date: 20210420
  Serious: Yes (Other)
  Sender: FDA-Public Use
  Company Number: DE-MACLEODS PHARMA UK LTD-MAC2021030380

PATIENT

DRUGS (2)
  1. ESCITALOPRAM [Suspect]
     Active Substance: ESCITALOPRAM OXALATE
     Indication: DEPRESSION
  2. ESCITALOPRAM [Suspect]
     Active Substance: ESCITALOPRAM OXALATE
     Indication: ANXIETY DISORDER
     Dosage: 20 MILLIGRAM
     Route: 048
     Dates: start: 20201015, end: 20210129

REACTIONS (4)
  - Erectile dysfunction [Recovered/Resolved]
  - Male orgasmic disorder [Recovered/Resolved]
  - Loss of libido [Recovered/Resolved]
  - Premature ejaculation [Recovered/Resolved]

NARRATIVE: CASE EVENT DATE: 20201205
